FAERS Safety Report 7129747-3 (Version None)
Quarter: 2010Q4

REPORT INFORMATION
  Report Type: 
  Country: None (occurrence: None)
  Receive Date: 20101130
  Receipt Date: 20101119
  Transmission Date: 20110411
  Serious: Yes (Hospitalization, Other)
  Sender: FDA-Public Use
  Company Number: DE-PFIZER INC-2010152878

PATIENT
  Age: 48 Year
  Sex: Male

DRUGS (3)
  1. VENLAFAXINE HCL [Suspect]
     Dosage: 150 MG, 1X/DAY
     Route: 048
     Dates: start: 20100727
  2. REMERGIL [Suspect]
     Dosage: 30 MG, 1X/DAY
     Route: 048
     Dates: start: 20100726, end: 20100726
  3. REMERGIL [Suspect]
     Dosage: 45 MG, 1X/DAY
     Route: 048
     Dates: start: 20100727, end: 20100825

REACTIONS (3)
  - ACCOMMODATION DISORDER [None]
  - IMPAIRED DRIVING ABILITY [None]
  - VISUAL IMPAIRMENT [None]
